FAERS Safety Report 12492067 (Version 3)
Quarter: 2016Q3

REPORT INFORMATION
  Report Type: Spontaneous
  Country: GB (occurrence: GB)
  Receive Date: 20160623
  Receipt Date: 20160801
  Transmission Date: 20161109
  Serious: Yes (Other)
  Sender: FDA-Public Use
  Company Number: GB-ROCHE-1776758

PATIENT
  Sex: Female

DRUGS (1)
  1. HERCEPTIN [Suspect]
     Active Substance: TRASTUZUMAB
     Indication: PRODUCT USED FOR UNKNOWN INDICATION
     Route: 058

REACTIONS (8)
  - Dizziness [Unknown]
  - Joint swelling [Unknown]
  - Visual impairment [Unknown]
  - Migraine [Unknown]
  - Pruritus [Unknown]
  - Poor quality sleep [Unknown]
  - Dysphonia [Unknown]
  - Cough [Unknown]

NARRATIVE: CASE EVENT DATE: 20160616
